FAERS Safety Report 21858292 (Version 1)
Quarter: 2023Q1

REPORT INFORMATION
  Report Type: Spontaneous
  Country: US (occurrence: None)
  Receive Date: 20230112
  Receipt Date: 20230112
  Transmission Date: 20230418
  Serious: No
  Sender: FDA-Public Use
  Company Number: None

PATIENT
  Sex: Female

DRUGS (1)
  1. REMICADE [Suspect]
     Active Substance: INFLIXIMAB
     Indication: Crohn^s disease
     Dosage: OTHER STRENGTH : 100MG/VL;?OTHER QUANTITY : 5MG/KG;?OTHER FREQUENCY : EVERY 8 WEEKS;?
     Route: 042
     Dates: start: 20190612

REACTIONS (1)
  - Therapy non-responder [None]
